FAERS Safety Report 18238717 (Version 1)
Quarter: 2020Q3

REPORT INFORMATION
  Report Type: Report from Study
  Country: ES (occurrence: ES)
  Receive Date: 20200907
  Receipt Date: 20200907
  Transmission Date: 20201103
  Serious: Yes (Other)
  Sender: FDA-Public Use
  Company Number: ES-B.I. PHARMACEUTICALS,INC./RIDGEFIELD-2020-BI-044502

PATIENT

DRUGS (1)
  1. IDARUCIZUMAB [Suspect]
     Active Substance: IDARUCIZUMAB
     Indication: PROCOAGULANT THERAPY
     Dosage: INITIAL REVERSAL AND SECOND REVERSAL DOSE AT 120H SINCE THE BEGINNING.

REACTIONS (3)
  - Anticoagulation drug level abnormal [Unknown]
  - Acute kidney injury [Unknown]
  - Haemorrhage [Unknown]
